FAERS Safety Report 7770171-8 (Version None)
Quarter: 2011Q3

REPORT INFORMATION
  Report Type: 
  Country: None (occurrence: None)
  Receive Date: 20110922
  Receipt Date: 20100915
  Transmission Date: 20111222
  Serious: Yes (Hospitalization)
  Sender: FDA-Public Use
  Company Number: US-ASTRAZENECA-2009UW08748

PATIENT
  Age: 11277 Day
  Sex: Female
  Weight: 69.4 kg

DRUGS (11)
  1. LITHIUM CARBONATE [Concomitant]
     Dates: start: 20070101
  2. SEROQUEL [Suspect]
     Indication: DEPRESSION
     Dosage: 200 MG TO 400 MG
     Route: 048
     Dates: start: 20020101
  3. ATIVAN [Concomitant]
     Dates: start: 20060101
  4. DOXEPIN [Concomitant]
     Indication: DEPRESSION
     Dates: start: 20070101
  5. KLONOPIN [Concomitant]
     Dosage: 0.5 MG TO 1 MG
     Dates: start: 20070101
  6. SEROQUEL [Suspect]
     Indication: SCHIZOPHRENIA
     Dosage: 200 MG TO 400 MG
     Route: 048
     Dates: start: 20020101
  7. SEROQUEL [Suspect]
     Indication: SLEEP DISORDER
     Dosage: 200 MG TO 400 MG
     Route: 048
     Dates: start: 20020101
  8. GEODON [Concomitant]
     Dates: start: 20060101
  9. RISPERDAL [Concomitant]
     Dates: start: 20060101
  10. SEROQUEL [Suspect]
     Indication: BIPOLAR DISORDER
     Dosage: 200 MG TO 400 MG
     Route: 048
     Dates: start: 20020101
  11. HALDOL [Concomitant]
     Dates: start: 20090101

REACTIONS (9)
  - HEADACHE [None]
  - RASH [None]
  - TYPE 2 DIABETES MELLITUS [None]
  - BLOOD CHOLESTEROL INCREASED [None]
  - HYPERLIPIDAEMIA [None]
  - MANIA [None]
  - HYPERGLYCAEMIA [None]
  - BLOOD TRIGLYCERIDES INCREASED [None]
  - OBESITY [None]
